FAERS Safety Report 5142903-9 (Version None)
Quarter: 2006Q4

REPORT INFORMATION
  Report Type: 
  Country: None (occurrence: None)
  Receive Date: 20061030
  Receipt Date: 20061018
  Transmission Date: 20070319
  Serious: Yes (Other)
  Sender: FDA-Public Use
  Company Number: FR200605006046

PATIENT
  Age: 72 Year
  Sex: Female

DRUGS (10)
  1. FORTEO [Suspect]
     Indication: OSTEOPOROSIS
     Dosage: 20 UG, DAILY (1/D), SUBCUTANEOUS
     Route: 058
     Dates: start: 20051126
  2. FORTEO [Concomitant]
  3. PROPOFAN (CAFFEINE, CARBASALATE CALCIUM, CHLORPHENAMINE MALEATE, DEXTR [Concomitant]
  4. LIPANTHYL (FENOFIBRATE) [Concomitant]
  5. MUCOMYST [Concomitant]
  6. SERETIDE (FLUTICASONE PROPIONATE, SALMETEROL) [Concomitant]
  7. LEXOMIL (BROMAZEPAM) [Concomitant]
  8. ISKEDYL (DIHYDROERGOCRISTINE MESILATE, RAUBASINE) [Concomitant]
  9. DAFLON (DIOSMIN) [Concomitant]
  10. ASPEGIC 1000 [Concomitant]

REACTIONS (9)
  - ALOPECIA [None]
  - FACIAL PALSY [None]
  - FLATULENCE [None]
  - HEADACHE [None]
  - HOT FLUSH [None]
  - MUSCULOSKELETAL PAIN [None]
  - MYOCLONUS [None]
  - PAIN IN EXTREMITY [None]
  - PRURITUS [None]
